FAERS Safety Report 12772980 (Version 1)
Quarter: 2016Q3

REPORT INFORMATION
  Report Type: Spontaneous
  Country: DK (occurrence: DK)
  Receive Date: 20160922
  Receipt Date: 20160922
  Transmission Date: 20161109
  Serious: Yes (Other)
  Sender: FDA-Public Use
  Company Number: DK-ALLERGAN-1648039

PATIENT
  Age: 33 Year
  Sex: Female
  Weight: 62 kg

DRUGS (3)
  1. ESMYA [Suspect]
     Active Substance: ULIPRISTAL ACETATE
     Indication: UTERINE LEIOMYOMA
     Dosage: 5 MG, DAILY
     Route: 048
     Dates: start: 20150614, end: 20150620
  2. IBUMETIN [Concomitant]
     Active Substance: IBUPROFEN
     Indication: UTERINE PAIN
     Dosage: 200 MG, UNK
     Route: 065
     Dates: end: 20160620
  3. PINEX [Concomitant]
     Active Substance: ACETAMINOPHEN
     Indication: UTERINE PAIN
     Dosage: 1000 MG, UNK
     Route: 065
     Dates: end: 20160620

REACTIONS (1)
  - Uterine leiomyoma [Recovered/Resolved]

NARRATIVE: CASE EVENT DATE: 20150619
